FAERS Safety Report 5281902-3 (Version None)
Quarter: 2007Q1

REPORT INFORMATION
  Report Type: 
  Country: None (occurrence: None)
  Receive Date: 20070330
  Receipt Date: 20070326
  Transmission Date: 20070707
  Serious: Yes (Death)
  Sender: FDA-Public Use
  Company Number: US-JNJFOC-20070305451

PATIENT
  Sex: Male
  Weight: 80 kg

DRUGS (10)
  1. DURAGESIC-100 [Suspect]
     Route: 062
  2. DURAGESIC-100 [Suspect]
     Route: 062
  3. DURAGESIC-100 [Suspect]
     Indication: PAIN
     Route: 062
  4. NORCO [Suspect]
     Indication: PAIN
     Route: 048
  5. AVANDIA [Concomitant]
     Indication: DIABETES MELLITUS
  6. EFFEXOR XR [Concomitant]
     Indication: DEPRESSION
  7. XANAX [Concomitant]
     Indication: ANXIETY
     Route: 048
  8. WELLBUTRIN [Concomitant]
     Indication: DEPRESSION
  9. PEPCID [Concomitant]
     Indication: GASTROOESOPHAGEAL REFLUX DISEASE
  10. INSULIN PUMP [Concomitant]

REACTIONS (4)
  - DEVICE LEAKAGE [None]
  - DRUG TOXICITY [None]
  - PRURITUS [None]
  - URTICARIA [None]
